FAERS Safety Report 10714857 (Version 1)
Quarter: 2015Q1

REPORT INFORMATION
  Report Type: Spontaneous
  Country: FR (occurrence: FR)
  Receive Date: 20150115
  Receipt Date: 20150115
  Transmission Date: 20150721
  Serious: Yes (Hospitalization, Other)
  Sender: FDA-Public Use
  Company Number: FR-ASTRAZENECA-2014SE18434

PATIENT
  Age: 29 Year
  Sex: Female
  Weight: 73 kg

DRUGS (16)
  1. SPECIAFOLDINE [Concomitant]
     Active Substance: FOLIC ACID
  2. LANTUS [Concomitant]
     Active Substance: INSULIN GLARGINE
  3. BRICANYL [Suspect]
     Active Substance: TERBUTALINE SULFATE
     Indication: DYSPNOEA
     Route: 055
     Dates: start: 20140824
  4. XEROQUEL [Suspect]
     Active Substance: QUETIAPINE FUMARATE
     Indication: BIPOLAR DISORDER
     Route: 048
     Dates: start: 2014
  5. XEROQUEL [Suspect]
     Active Substance: QUETIAPINE FUMARATE
     Indication: BIPOLAR DISORDER
     Route: 048
     Dates: start: 2014
  6. XEROQUEL [Suspect]
     Active Substance: QUETIAPINE FUMARATE
     Indication: SCHIZOAFFECTIVE DISORDER
     Route: 048
     Dates: start: 2014
  7. XEROQUEL [Suspect]
     Active Substance: QUETIAPINE FUMARATE
     Indication: BIPOLAR DISORDER
     Route: 048
     Dates: start: 20140211
  8. XANAX [Concomitant]
     Active Substance: ALPRAZOLAM
     Route: 048
  9. XEROQUEL [Suspect]
     Active Substance: QUETIAPINE FUMARATE
     Indication: BIPOLAR DISORDER
     Route: 048
  10. XEROQUEL [Suspect]
     Active Substance: QUETIAPINE FUMARATE
     Indication: SCHIZOAFFECTIVE DISORDER
     Route: 048
  11. NOVORAPID [Concomitant]
     Active Substance: INSULIN ASPART
     Dosage: 11 IU EVERY MORNING, 7 IU AT MIDDAY AND 13 IU EVERY EVENING
  12. UVEDOSE [Concomitant]
     Active Substance: CHOLECALCIFEROL
  13. XEROQUEL [Suspect]
     Active Substance: QUETIAPINE FUMARATE
     Indication: BIPOLAR DISORDER
     Route: 048
  14. XEROQUEL [Suspect]
     Active Substance: QUETIAPINE FUMARATE
     Indication: SCHIZOAFFECTIVE DISORDER
     Route: 048
  15. XEROQUEL [Suspect]
     Active Substance: QUETIAPINE FUMARATE
     Indication: SCHIZOAFFECTIVE DISORDER
     Route: 048
     Dates: start: 20140211
  16. XEROQUEL [Suspect]
     Active Substance: QUETIAPINE FUMARATE
     Indication: SCHIZOAFFECTIVE DISORDER
     Route: 048
     Dates: start: 2014

REACTIONS (10)
  - Diabetic retinopathy [Unknown]
  - Endometritis [Unknown]
  - Somnolence [Recovered/Resolved]
  - Pre-eclampsia [Unknown]
  - Diabetic nephropathy [Unknown]
  - Urinary tract infection [Unknown]
  - Exposure during pregnancy [Recovered/Resolved]
  - Diabetes mellitus [Unknown]
  - Weight increased [Unknown]
  - Dyspnoea [Unknown]

NARRATIVE: CASE EVENT DATE: 2014
